FAERS Safety Report 8557318-0 (Version None)
Quarter: 2012Q3

REPORT INFORMATION
  Report Type: 
  Country: None (occurrence: None)
  Receive Date: 20120801
  Receipt Date: 20120727
  Transmission Date: 20120928
  Serious: Yes (Death, Hospitalization)
  Sender: FDA-Public Use
  Company Number: DE-ROCHE-1095088

PATIENT
  Sex: Male

DRUGS (9)
  1. ASPIRIN [Concomitant]
  2. GLIMEPIRIDE [Concomitant]
  3. TORSEMIDE [Concomitant]
  4. AVASTIN [Suspect]
     Indication: IRIS NEOVASCULARISATION
     Dates: start: 20120404
  5. SIMVASTATIN [Concomitant]
  6. BISOPROLOL FUMARATE [Concomitant]
  7. AMLODIPINE [Concomitant]
  8. IRBESARTAN AND HYDROCHLOROTHIAZIDE [Concomitant]
  9. PENTAERYTHRITOL TETRANITRATE [Concomitant]

REACTIONS (2)
  - VENTRICULAR TACHYCARDIA [None]
  - MYOCARDIAL INFARCTION [None]
